FAERS Safety Report 15106679 (Version 1)
Quarter: 2018Q3

REPORT INFORMATION
  Report Type: Spontaneous
  Country: US (occurrence: US)
  Receive Date: 20180704
  Receipt Date: 20180704
  Transmission Date: 20181010
  Serious: No
  Sender: FDA-Public Use
  Company Number: US-SA-2018SA168759

PATIENT
  Sex: Female

DRUGS (1)
  1. PRALUENT [Suspect]
     Active Substance: ALIROCUMAB
     Dosage: UNK UNK, QM
     Route: 058

REACTIONS (4)
  - Pain [Unknown]
  - Myalgia [Recovered/Resolved]
  - Muscular weakness [Unknown]
  - Product use issue [Unknown]
